FAERS Safety Report 16759900 (Version 1)
Quarter: 2019Q3

REPORT INFORMATION
  Report Type: Spontaneous
  Country: US (occurrence: US)
  Receive Date: 20190830
  Receipt Date: 20190830
  Transmission Date: 20191005
  Serious: Yes (Other)
  Sender: FDA-Public Use
  Company Number: US-JNJFOC-20190830681

PATIENT
  Sex: Female

DRUGS (6)
  1. IMURAN [Concomitant]
     Active Substance: AZATHIOPRINE
  2. STELARA [Suspect]
     Active Substance: USTEKINUMAB
     Indication: CROHN^S DISEASE
     Route: 058
  3. TYLENOL [Concomitant]
     Active Substance: ACETAMINOPHEN
  4. MELATONIN [Concomitant]
     Active Substance: MELATONIN
  5. IBUPROFEN. [Concomitant]
     Active Substance: IBUPROFEN
  6. PREDNISONE. [Concomitant]
     Active Substance: PREDNISONE

REACTIONS (1)
  - Surgery [Unknown]
